FAERS Safety Report 4727553-8 (Version None)
Quarter: 2005Q3

REPORT INFORMATION
  Report Type: 
  Country: None (occurrence: None)
  Receive Date: 20050728
  Receipt Date: 20050728
  Transmission Date: 20060218
  Serious: Yes (Other)
  Sender: FDA-Public Use
  Company Number: None

PATIENT
  Age: 32 Year
  Sex: Male
  Weight: 76 kg

DRUGS (3)
  1. RISPERIDONE [Suspect]
     Indication: DELUSION
     Dosage: 4MG    BID   ORAL
     Route: 048
     Dates: start: 20030723, end: 20040413
  2. FENOFIBRATE [Concomitant]
  3. ZIPRASIDONE [Concomitant]

REACTIONS (4)
  - BLOOD TRIGLYCERIDES INCREASED [None]
  - GLUCOSE TOLERANCE IMPAIRED [None]
  - HYPERGLYCAEMIA [None]
  - KETONURIA [None]
